FAERS Safety Report 11420213 (Version 1)
Quarter: 2015Q3

REPORT INFORMATION
  Report Type: Spontaneous
  Country: US (occurrence: US)
  Receive Date: 20150826
  Receipt Date: 20150826
  Transmission Date: 20151125
  Serious: No
  Sender: FDA-Public Use
  Company Number: US-ACTELION PHARMACEUTICALS US, INC.-A-NJ2015-120749

PATIENT
  Age: 61 Year
  Sex: Male

DRUGS (6)
  1. CENTRUM [Concomitant]
     Active Substance: VITAMINS
  2. MELOXICAM. [Concomitant]
     Active Substance: MELOXICAM
  3. TRIAMTERENE. [Concomitant]
     Active Substance: TRIAMTERENE
  4. VALCHLOR [Suspect]
     Active Substance: MECHLORETHAMINE
     Indication: MYCOSIS FUNGOIDES
     Dosage: UNK, DAILY
     Route: 061
     Dates: start: 20141029
  5. AMLODIPINE [Concomitant]
     Active Substance: AMLODIPINE BESYLATE
  6. HYDROCODONE [Concomitant]
     Active Substance: HYDROCODONE

REACTIONS (3)
  - Application site hypersensitivity [Recovered/Resolved]
  - Erythema [Recovered/Resolved]
  - Administration site inflammation [Recovered/Resolved]

NARRATIVE: CASE EVENT DATE: 20150511
